FAERS Safety Report 5205646-9 (Version None)
Quarter: 2007Q1

REPORT INFORMATION
  Report Type: 
  Country: None (occurrence: None)
  Receive Date: 20070105
  Receipt Date: 20070105
  Transmission Date: 20070707
  Serious: Yes (Hospitalization)
  Sender: FDA-Public Use
  Company Number: None

PATIENT
  Age: 40 Year
  Sex: Male
  Weight: 86.8 kg

DRUGS (5)
  1. ACETAMINOPHEN [Suspect]
     Indication: PAIN
     Dosage: 1500 MG PO
     Route: 048
     Dates: start: 20060707, end: 20060709
  2. PANTOPRAZOLE SODIUM [Concomitant]
  3. AMOXICILLIN [Concomitant]
  4. LEVOFLOXACIN [Concomitant]
  5. OXYCODONE/ACETAMINOPHEN [Concomitant]

REACTIONS (4)
  - ABDOMINAL PAIN [None]
  - INADEQUATE ANALGESIA [None]
  - OVERDOSE [None]
  - VOMITING [None]
